FAERS Safety Report 9027033 (Version 2)
Quarter: 2013Q1

REPORT INFORMATION
  Report Type: Spontaneous
  Country: US (occurrence: US)
  Receive Date: 20130123
  Receipt Date: 20130212
  Transmission Date: 20140127
  Serious: No
  Sender: FDA-Public Use
  Company Number: US-009507513-1301USA008645

PATIENT
  Sex: Female

DRUGS (2)
  1. AZASITE [Suspect]
     Dosage: 2 GTT, BID
     Route: 047
     Dates: start: 20130104
  2. AZASITE [Suspect]
     Dosage: UNK

REACTIONS (4)
  - Eye disorder [Unknown]
  - Drug dose omission [Unknown]
  - Product quality issue [Unknown]
  - Product packaging quantity issue [Unknown]
